FAERS Safety Report 24843706 (Version 1)
Quarter: 2025Q1

REPORT INFORMATION
  Report Type: Spontaneous
  Country: IT (occurrence: IT)
  Receive Date: 20250115
  Receipt Date: 20250115
  Transmission Date: 20250409
  Serious: Yes (Hospitalization)
  Sender: CELLTRION
  Company Number: IT-JNJFOC-20240720833

PATIENT

DRUGS (7)
  1. TRASTUZUMAB [Suspect]
     Active Substance: TRASTUZUMAB
     Indication: HER2 positive colorectal cancer
     Route: 042
     Dates: start: 20240523, end: 20240523
  2. LOPERAMIDE HYDROCHLORIDE [Suspect]
     Active Substance: LOPERAMIDE HYDROCHLORIDE
     Indication: HER2 positive colorectal cancer
     Route: 065
     Dates: start: 20240523, end: 20240605
  3. LOPERAMIDE HYDROCHLORIDE [Suspect]
     Active Substance: LOPERAMIDE HYDROCHLORIDE
     Route: 065
     Dates: start: 20240606
  4. TUCATINIB [Suspect]
     Active Substance: TUCATINIB
     Indication: HER2 positive colorectal cancer
     Route: 048
     Dates: start: 20240523, end: 20240623
  5. FLUOROURACIL [Suspect]
     Active Substance: FLUOROURACIL
     Indication: HER2 positive colorectal cancer
     Route: 042
     Dates: start: 20240523, end: 20240618
  6. LEVOLEUCOVORIN CALCIUM PENTAHYDRATE [Suspect]
     Active Substance: LEVOLEUCOVORIN CALCIUM PENTAHYDRATE
     Indication: HER2 positive colorectal cancer
     Route: 042
     Dates: start: 20240523, end: 20240618
  7. OXALIPLATIN [Suspect]
     Active Substance: OXALIPLATIN
     Indication: HER2 positive colorectal cancer
     Route: 042
     Dates: start: 20240523, end: 20240618

REACTIONS (3)
  - Blood creatinine increased [Not Recovered/Not Resolved]
  - Off label use [Unknown]
  - Intentional product use issue [Unknown]

NARRATIVE: CASE EVENT DATE: 20240523
